FAERS Safety Report 5214187-4 (Version None)
Quarter: 2007Q1

REPORT INFORMATION
  Report Type: 
  Country: None (occurrence: None)
  Receive Date: 20070112
  Receipt Date: 20070105
  Transmission Date: 20070707
  Serious: Yes (Death, Life-Threatening, Hospitalization)
  Sender: FDA-Public Use
  Company Number: 028-21880-06110605

PATIENT
  Age: 63 Year
  Sex: Male
  Weight: 71.2 kg

DRUGS (7)
  1. REVLIMID [Suspect]
     Indication: CHRONIC LYMPHOCYTIC LEUKAEMIA
     Dosage: 10 MG, DAILY, ORAL
     Route: 048
     Dates: start: 20061019, end: 20061108
  2. NILSTAT (NYSTATIN) [Concomitant]
  3. FLAGYL [Concomitant]
  4. TYLENOL II (SOLPADEINE) [Concomitant]
  5. ALLOPURINOL [Concomitant]
  6. NAPROSYN [Concomitant]
  7. IMODIUM [Concomitant]

REACTIONS (24)
  - ACTIVATED PARTIAL THROMBOPLASTIN TIME PROLONGED [None]
  - BETA HAEMOLYTIC STREPTOCOCCAL INFECTION [None]
  - BLOOD CALCIUM DECREASED [None]
  - BLOOD CULTURE POSITIVE [None]
  - BLOOD URIC ACID DECREASED [None]
  - CANDIDIASIS [None]
  - CHOLESTASIS [None]
  - COAGULOPATHY [None]
  - DIALYSIS [None]
  - DYSPNOEA [None]
  - FEBRILE NEUTROPENIA [None]
  - GENERAL PHYSICAL HEALTH DETERIORATION [None]
  - HAEMOGLOBIN DECREASED [None]
  - HEPATIC FUNCTION ABNORMAL [None]
  - HYPOTENSION [None]
  - HYPOXIA [None]
  - INTERNATIONAL NORMALISED RATIO INCREASED [None]
  - ISCHAEMIC HEPATITIS [None]
  - MULTI-ORGAN FAILURE [None]
  - PLATELET COUNT DECREASED [None]
  - RENAL IMPAIRMENT [None]
  - RESPIRATORY DISORDER [None]
  - SEPTIC SHOCK [None]
  - TUMOUR FLARE [None]
